FAERS Safety Report 21964033 (Version 1)
Quarter: 2023Q1

REPORT INFORMATION
  Report Type: Spontaneous
  Country: US (occurrence: None)
  Receive Date: 20230206
  Receipt Date: 20230206
  Transmission Date: 20230417
  Serious: No
  Sender: FDA-Public Use
  Company Number: None

PATIENT
  Age: 47 Year
  Sex: Female
  Weight: 123.79 kg

DRUGS (14)
  1. ZARXIO [Suspect]
     Active Substance: FILGRASTIM-SNDZ
     Indication: Breast cancer female
     Dosage: FREQUENCY : DAILY;?
     Route: 058
  2. ALLEGRA [Concomitant]
     Active Substance: FEXOFENADINE HYDROCHLORIDE
  3. CALCIUM ANTACID [Concomitant]
     Active Substance: CALCIUM CARBONATE
  4. CARAFATE [Concomitant]
     Active Substance: SUCRALFATE
  5. CARVEDILOL [Concomitant]
     Active Substance: CARVEDILOL
  6. ELIQUIS [Concomitant]
     Active Substance: APIXABAN
  7. HERCEPTIN [Concomitant]
     Active Substance: TRASTUZUMAB
  8. LISINOPRIL [Concomitant]
     Active Substance: LISINOPRIL
  9. PEPCID [Concomitant]
     Active Substance: FAMOTIDINE
  10. STOOL SOFTENER (DOCUSATE) [Concomitant]
     Active Substance: DOCUSATE
  11. TUMS [Concomitant]
     Active Substance: CALCIUM CARBONATE
  12. VITAMIN B12 [Concomitant]
     Active Substance: CYANOCOBALAMIN
  13. XGEVA [Concomitant]
     Active Substance: DENOSUMAB
  14. ZOFRAN [Concomitant]
     Active Substance: ONDANSETRON HYDROCHLORIDE

REACTIONS (2)
  - White blood cell count increased [None]
  - Therapy interrupted [None]
